FAERS Safety Report 6983206-7 (Version None)
Quarter: 2010Q3

REPORT INFORMATION
  Report Type: 
  Country: None (occurrence: None)
  Receive Date: 20100910
  Receipt Date: 20100901
  Transmission Date: 20110219
  Serious: Yes (Hospitalization, Other)
  Sender: FDA-Public Use
  Company Number: 2010US003565

PATIENT
  Age: 72 Year
  Sex: Female

DRUGS (1)
  1. VESICARE [Suspect]
     Indication: URINARY INCONTINENCE
     Dosage: 10 MG/D, ORAL
     Route: 048

REACTIONS (3)
  - ESCHERICHIA BACTERAEMIA [None]
  - PAROTITIS [None]
  - URINARY TRACT INFECTION [None]
